FAERS Safety Report 5332795-7 (Version None)
Quarter: 2007Q2

REPORT INFORMATION
  Report Type: 
  Country: None (occurrence: None)
  Receive Date: 20070523
  Receipt Date: 20070515
  Transmission Date: 20071010
  Serious: Yes (Other)
  Sender: FDA-Public Use
  Company Number: US-PFIZER INC-2007039622

PATIENT
  Sex: Male
  Weight: 79.545 kg

DRUGS (4)
  1. CAVERJECT [Suspect]
     Indication: ERECTILE DYSFUNCTION
  2. WARFARIN SODIUM [Concomitant]
  3. ATENOLOL [Concomitant]
  4. DIGITEK [Concomitant]

REACTIONS (2)
  - PENIS DISORDER [None]
  - PROTHROMBIN TIME PROLONGED [None]
